FAERS Safety Report 17840494 (Version 4)
Quarter: 2021Q3

REPORT INFORMATION
  Report Type: Spontaneous
  Country: US (occurrence: US)
  Receive Date: 20200529
  Receipt Date: 20210726
  Transmission Date: 20211014
  Serious: Yes (Other)
  Sender: FDA-Public Use
  Company Number: US-PFIZER INC-2020211600

PATIENT
  Age: 80 Year
  Sex: Female

DRUGS (16)
  1. PROTONIX [Suspect]
     Active Substance: PANTOPRAZOLE SODIUM
     Indication: GASTROOESOPHAGEAL REFLUX DISEASE
     Dosage: UNK
     Dates: start: 2001, end: 2015
  2. NEXIUM 24HR [Suspect]
     Active Substance: ESOMEPRAZOLE MAGNESIUM
     Dosage: UNK
     Dates: start: 2001, end: 2015
  3. PREVACID 24 HR [Suspect]
     Active Substance: LANSOPRAZOLE
     Dosage: UNK
  4. PRILOSEC OTC [Suspect]
     Active Substance: OMEPRAZOLE MAGNESIUM
     Indication: GASTROOESOPHAGEAL REFLUX DISEASE
     Dosage: 10 MG, 1?2 TIMES PER DAY
     Dates: start: 201108, end: 2019
  5. IBUPROFEN. [Concomitant]
     Active Substance: IBUPROFEN
     Indication: PAIN
     Dosage: UNK
  6. MYLANTA [Concomitant]
     Active Substance: ALUMINUM HYDROXIDE\DIMETHICONE\MAGNESIUM HYDROXIDE
     Indication: ANTACID THERAPY
     Dosage: UNK
  7. PRILOSEC [Suspect]
     Active Substance: OMEPRAZOLE MAGNESIUM
     Dosage: UNK, 1?2 TIMES PER DAY
     Dates: start: 201712, end: 201806
  8. TYLENOL [Concomitant]
     Active Substance: ACETAMINOPHEN
     Indication: PAIN
     Dosage: UNK
  9. PROTONIX [Suspect]
     Active Substance: PANTOPRAZOLE SODIUM
     Dosage: 40 MG, 1?2 TIMES PER DAY
     Dates: start: 2009, end: 2010
  10. NEXIUM [Suspect]
     Active Substance: ESOMEPRAZOLE MAGNESIUM
     Dosage: UNK
     Dates: start: 2001, end: 2015
  11. FAMOTIDINE, CALCIUM CARBONATE AND MAGNESIUM HYDROXIDE (OTC) [Concomitant]
     Dosage: UNK
  12. NEXIUM [Suspect]
     Active Substance: ESOMEPRAZOLE MAGNESIUM
     Indication: GASTROOESOPHAGEAL REFLUX DISEASE
     Dosage: UNK, 1?2 TIMES PER DAY
     Dates: start: 199806, end: 200110
  13. MAALOX ANTACID [Concomitant]
     Active Substance: ALUMINUM HYDROXIDE\DIMETHICONE\MAGNESIUM HYDROXIDE
     Indication: ANTACID THERAPY
     Dosage: UNK
  14. PRILOSEC [Suspect]
     Active Substance: OMEPRAZOLE MAGNESIUM
     Indication: GASTROOESOPHAGEAL REFLUX DISEASE
     Dosage: UNK
     Dates: start: 2001, end: 2015
  15. PREVACID [Suspect]
     Active Substance: LANSOPRAZOLE
     Indication: GASTROOESOPHAGEAL REFLUX DISEASE
     Dosage: UNK, 1?2 TIMES PER DAY
     Dates: start: 200112, end: 201712
  16. PEPCID AC [Concomitant]
     Active Substance: FAMOTIDINE
     Dosage: UNK

REACTIONS (1)
  - Chronic kidney disease [Not Recovered/Not Resolved]
